FAERS Safety Report 7860070-5 (Version None)
Quarter: 2011Q4

REPORT INFORMATION
  Report Type: 
  Country: None (occurrence: None)
  Receive Date: 20111025
  Receipt Date: 20111013
  Transmission Date: 20120403
  Serious: Yes (Other)
  Sender: FDA-Public Use
  Company Number: 2011SP048612

PATIENT
  Sex: Female

DRUGS (3)
  1. COGENTIN [Concomitant]
  2. LORAZEPAM [Concomitant]
  3. SAPHRIS [Suspect]
     Indication: BIPOLAR DISORDER
     Dosage: 10 MG; BID; SL
     Route: 060

REACTIONS (3)
  - DELUSION [None]
  - HALLUCINATION [None]
  - CONDITION AGGRAVATED [None]
